FAERS Safety Report 7153768-8 (Version None)
Quarter: 2010Q4

REPORT INFORMATION
  Report Type: 
  Country: None (occurrence: None)
  Receive Date: 20101213
  Receipt Date: 20101027
  Transmission Date: 20110411
  Serious: No
  Sender: FDA-Public Use
  Company Number: US-ABBOTT-10P-163-0681504-00

PATIENT
  Sex: Female
  Weight: 108.96 kg

DRUGS (1)
  1. MERIDIA [Suspect]
     Indication: WEIGHT DECREASED
     Dosage: TOOK 2 PILLS TOTAL
     Dates: start: 20100201, end: 20100201

REACTIONS (1)
  - FEELING ABNORMAL [None]
